FAERS Safety Report 19458540 (Version 1)
Quarter: 2021Q2

REPORT INFORMATION
  Report Type: Spontaneous
  Country: US (occurrence: US)
  Receive Date: 20210624
  Receipt Date: 20210624
  Transmission Date: 20210717
  Serious: Yes (Hospitalization, Other)
  Sender: FDA-Public Use
  Company Number: US-BAYER-2021-161597

PATIENT
  Age: 38 Year
  Sex: Female

DRUGS (1)
  1. LEVONORGESTREL IUS [UNKNOWN] [Suspect]
     Active Substance: LEVONORGESTREL
     Route: 015

REACTIONS (8)
  - Mania [None]
  - Catatonia [Recovering/Resolving]
  - Psychotic disorder [Recovered/Resolved]
  - Insomnia [None]
  - Stereotypy [None]
  - Pressure of speech [None]
  - Tangentiality [None]
  - Hallucination [None]
